FAERS Safety Report 14701915 (Version 1)
Quarter: 2018Q1

REPORT INFORMATION
  Report Type: Spontaneous
  Country: FR (occurrence: FR)
  Receive Date: 20180331
  Receipt Date: 20180331
  Transmission Date: 20180509
  Serious: Yes (Hospitalization)
  Sender: FDA-Public Use
  Company Number: FR-AUROBINDO-AUR-APL-2018-017616

PATIENT
  Age: 73 Year
  Sex: Female
  Weight: 133 kg

DRUGS (3)
  1. AMOXICILLIN 500MG [Suspect]
     Active Substance: AMOXICILLIN
     Indication: INFECTION
     Route: 048
     Dates: start: 20171115, end: 20171121
  2. VANCOMYCINE MYLAN                  /00314401/ [Suspect]
     Active Substance: VANCOMYCIN
     Indication: INFECTION
     Dosage: ()
     Route: 042
     Dates: end: 20171122
  3. LANSOPRAZOLE MYLAN [Suspect]
     Active Substance: LANSOPRAZOLE
     Indication: INFECTION
     Route: 048
     Dates: start: 20171028, end: 20171125

REACTIONS (2)
  - Rash [Recovered/Resolved]
  - Condition aggravated [Recovering/Resolving]

NARRATIVE: CASE EVENT DATE: 20171120
